FAERS Safety Report 13983878 (Version 1)
Quarter: 2017Q3

REPORT INFORMATION
  Report Type: Spontaneous
  Country: CA (occurrence: CA)
  Receive Date: 20170918
  Receipt Date: 20170918
  Transmission Date: 20171128
  Serious: Yes (Death, Life-Threatening, Hospitalization, Other)
  Sender: FDA-Public Use
  Company Number: CA-LUPIN PHARMACEUTICALS INC.-2017-05416

PATIENT
  Age: 18 Year
  Sex: Female
  Weight: 63 kg

DRUGS (7)
  1. ATOMOXETINE. [Concomitant]
     Active Substance: ATOMOXETINE HYDROCHLORIDE
     Indication: PRODUCT USED FOR UNKNOWN INDICATION
     Dosage: UNK UNK, QD
     Route: 065
  2. PARACETAMOL TABLET [Suspect]
     Active Substance: ACETAMINOPHEN
     Indication: PRODUCT USED FOR UNKNOWN INDICATION
     Dosage: UNK (APRROXIMATELY 40 PILLS)
     Route: 048
  3. ACETYLSALICILIC ACID [Suspect]
     Active Substance: ASPIRIN
     Indication: PRODUCT USED FOR UNKNOWN INDICATION
     Dosage: UNK (APPROXIMATELY 15 PILLS)
  4. CITALOPRAM [Concomitant]
     Active Substance: CITALOPRAM HYDROBROMIDE
     Indication: PRODUCT USED FOR UNKNOWN INDICATION
     Dosage: UNK UNK, QD
     Route: 065
  5. ISONIAZID. [Concomitant]
     Active Substance: ISONIAZID
     Indication: PRODUCT USED FOR UNKNOWN INDICATION
     Dosage: UNK UNK, QD
     Route: 065
  6. QUETIAPINE. [Suspect]
     Active Substance: QUETIAPINE
     Indication: PRODUCT USED FOR UNKNOWN INDICATION
     Dosage: UNK UNK, QD
     Route: 048
  7. QUETIAPINE. [Suspect]
     Active Substance: QUETIAPINE
     Dosage: UNK (APPROXIMATELY 20 PILLS)
     Route: 048

REACTIONS (11)
  - Intentional overdose [Fatal]
  - Toxicity to various agents [Fatal]
  - Hepatic encephalopathy [None]
  - Myocarditis [Fatal]
  - Completed suicide [Fatal]
  - Hepatic failure [None]
  - Cardiac index abnormal [None]
  - Atrial fibrillation [None]
  - Intentional overdose [None]
  - Electrocardiogram ST segment elevation [None]
  - Electrocardiogram QT prolonged [None]
